FAERS Safety Report 5823763-7 (Version None)
Quarter: 2008Q3

REPORT INFORMATION
  Report Type: 
  Country: None (occurrence: None)
  Receive Date: 20080725
  Receipt Date: 20080716
  Transmission Date: 20090109
  Serious: Yes (Other)
  Sender: FDA-Public Use
  Company Number: JP-PFIZER INC-2008059712

PATIENT
  Age: 55 Year

DRUGS (5)
  1. ALPRAZOLAM [Suspect]
     Route: 048
  2. FLUVOXAMINE MALEATE [Suspect]
     Indication: DEPRESSION
     Dosage: DAILY DOSE:150MG
     Route: 048
  3. CARBOCISTEINE [Concomitant]
     Route: 048
  4. ALL OTHER THERAPEUTIC PRODUCTS [Concomitant]
  5. ALCOHOL [Concomitant]

REACTIONS (1)
  - LOSS OF CONSCIOUSNESS [None]
